FAERS Safety Report 9532772 (Version 2)
Quarter: 2013Q3

REPORT INFORMATION
  Report Type: Spontaneous
  Country: US (occurrence: US)
  Receive Date: 20130918
  Receipt Date: 20130918
  Transmission Date: 20140515
  Serious: No
  Sender: FDA-Public Use
  Company Number: US-PURDUE-USA-2011-0075704

PATIENT
  Age: 44 Year
  Sex: Male
  Weight: 61.68 kg

DRUGS (2)
  1. BUTRANS [Suspect]
     Indication: BACK PAIN
     Dosage: 20 MCG/HR, DAILY
     Route: 062
     Dates: start: 201109, end: 20111004
  2. MS-IR [Concomitant]
     Indication: PRODUCT USED FOR UNKNOWN INDICATION
     Dosage: 15 MG, UNK

REACTIONS (10)
  - Mydriasis [Unknown]
  - Abasia [Unknown]
  - Wrong technique in drug usage process [Unknown]
  - Somnolence [Unknown]
  - Syncope [Unknown]
  - Dizziness [Unknown]
  - Application site erythema [Unknown]
  - Application site urticaria [Unknown]
  - Drug hypersensitivity [Unknown]
  - Headache [Unknown]
